FAERS Safety Report 11918808 (Version 1)
Quarter: 2016Q1

REPORT INFORMATION
  Report Type: Spontaneous
  Country: US (occurrence: None)
  Receive Date: 20160114
  Receipt Date: 20160114
  Transmission Date: 20160526
  Serious: Yes (Hospitalization)
  Sender: FDA-Public Use
  Company Number: None

PATIENT
  Age: 65 Year
  Sex: Female

DRUGS (1)
  1. ATORVASTATIN [Suspect]
     Active Substance: ATORVASTATIN
     Dosage: 117+ DAYS
     Dates: start: 201406, end: 20141127

REACTIONS (8)
  - Drug-induced liver injury [None]
  - Decreased appetite [None]
  - Fatigue [None]
  - Autoimmune hepatitis [None]
  - Myalgia [None]
  - Dizziness [None]
  - Hepatitis [None]
  - Weight decreased [None]

NARRATIVE: CASE EVENT DATE: 20141126
